FAERS Safety Report 5777493-0 (Version None)
Quarter: 2008Q2

REPORT INFORMATION
  Report Type: 
  Country: None (occurrence: None)
  Receive Date: 20080618
  Receipt Date: 20080606
  Transmission Date: 20081010
  Serious: Yes (Hospitalization, Other)
  Sender: FDA-Public Use
  Company Number: US-PFIZER INC-2008048170

PATIENT
  Sex: Female

DRUGS (9)
  1. ZOLOFT [Suspect]
     Indication: OBSESSIVE-COMPULSIVE DISORDER
     Dosage: DAILY DOSE:300MG
     Route: 048
  2. ZOLOFT [Suspect]
     Indication: DEPRESSION
  3. CIPROFLOXACIN [Suspect]
     Indication: TOOTH INFECTION
     Dosage: DAILY DOSE:500MG
  4. CIPROFLOXACIN [Suspect]
     Indication: STAPHYLOCOCCAL INFECTION
  5. RISPERDAL [Suspect]
     Indication: SCHIZOAFFECTIVE DISORDER
     Dosage: DAILY DOSE:6MG
     Route: 048
  6. LEVAQUIN [Suspect]
     Indication: TOOTH INFECTION
     Dosage: DAILY DOSE:500MG
  7. LEVAQUIN [Suspect]
     Indication: STAPHYLOCOCCAL INFECTION
  8. KLONOPIN [Concomitant]
  9. RESTORIL [Concomitant]

REACTIONS (6)
  - AMENORRHOEA [None]
  - BLOOD SODIUM DECREASED [None]
  - GALACTORRHOEA [None]
  - POLYDIPSIA [None]
  - PSYCHOTIC DISORDER [None]
  - TOOTH INFECTION [None]
